FAERS Safety Report 15881361 (Version 1)
Quarter: 2019Q1

REPORT INFORMATION
  Report Type: Spontaneous
  Country: US (occurrence: US)
  Receive Date: 20190128
  Receipt Date: 20190128
  Transmission Date: 20190417
  Serious: Yes (Hospitalization, Disabling, Other)
  Sender: FDA-Public Use
  Company Number: US-JNJFOC-20190128893

PATIENT
  Age: 61 Year
  Sex: Male

DRUGS (2)
  1. INVOKANA [Suspect]
     Active Substance: CANAGLIFLOZIN
     Indication: TYPE 2 DIABETES MELLITUS
     Route: 048
     Dates: start: 20150108, end: 20150821
  2. INVOKANA [Suspect]
     Active Substance: CANAGLIFLOZIN
     Indication: TYPE 2 DIABETES MELLITUS
     Route: 048
     Dates: start: 20140324, end: 20141009

REACTIONS (6)
  - Infection [Unknown]
  - Leg amputation [Unknown]
  - Gangrene [Unknown]
  - Osteomyelitis [Unknown]
  - Arm amputation [Unknown]
  - Neuropathic arthropathy [Unknown]

NARRATIVE: CASE EVENT DATE: 20140701
